FAERS Safety Report 25446228 (Version 1)
Quarter: 2025Q2

REPORT INFORMATION
  Report Type: Spontaneous
  Country: US (occurrence: None)
  Receive Date: 20250617
  Receipt Date: 20250617
  Transmission Date: 20250716
  Serious: Yes (Death, Hospitalization)
  Sender: FDA-CTU
  Company Number: None

PATIENT
  Age: 78 Year
  Sex: Female

DRUGS (1)
  1. LENALIDOMIDE [Suspect]
     Active Substance: LENALIDOMIDE
     Indication: Plasma cell myeloma
     Dosage: 10MG QD ORAL ?
     Route: 048
     Dates: start: 20241212, end: 20250520

REACTIONS (10)
  - Sepsis [None]
  - Febrile neutropenia [None]
  - Cellulitis [None]
  - Respiratory failure [None]
  - Cardiac failure congestive [None]
  - Lethargy [None]
  - Hypercapnia [None]
  - Antimicrobial susceptibility test resistant [None]
  - Hypotension [None]
  - Agonal respiration [None]

NARRATIVE: CASE EVENT DATE: 20250525
